FAERS Safety Report 5500997-2 (Version None)
Quarter: 2007Q4

REPORT INFORMATION
  Report Type: 
  Country: None (occurrence: None)
  Receive Date: 20071029
  Receipt Date: 20071019
  Transmission Date: 20080405
  Serious: Yes (Hospitalization, Other)
  Sender: FDA-Public Use
  Company Number: PHNR2007AU01297

PATIENT
  Age: 63 Year
  Sex: Female

DRUGS (6)
  1. CLOZARIL [Suspect]
     Indication: SCHIZOPHRENIA
     Dosage: 0 - 700MG DAILY
     Dates: start: 19950915, end: 19990525
  2. CLOZARIL [Suspect]
     Dosage: 0 - 350MG DAILY
     Dates: start: 20011123, end: 20070402
  3. CLOZARIL [Suspect]
     Dosage: 200MG DAILY
     Dates: start: 20070402, end: 20070919
  4. FLIXOTIDE [Concomitant]
  5. ACIMAX [Concomitant]
     Dosage: 20 MG, QD
  6. LOSEC [Concomitant]
     Dosage: 20 MG, QD

REACTIONS (5)
  - CONDITION AGGRAVATED [None]
  - CONVULSION [None]
  - DRUG LEVEL BELOW THERAPEUTIC [None]
  - LEUKOPENIA [None]
  - NEUTROPENIA [None]
